FAERS Safety Report 7808002-X (Version None)
Quarter: 2011Q4

REPORT INFORMATION
  Report Type: 
  Country: None (occurrence: None)
  Receive Date: 20111011
  Receipt Date: 20111011
  Transmission Date: 20120403
  Serious: Yes (Disabling)
  Sender: FDA-Public Use
  Company Number: None

PATIENT
  Age: 48 Year
  Sex: Female
  Weight: 58 kg

DRUGS (1)
  1. ARIMIDEX [Suspect]
     Indication: BREAST CANCER
     Dosage: 1 MG
     Route: 048
     Dates: start: 20090226, end: 20101218

REACTIONS (5)
  - IMPAIRED WORK ABILITY [None]
  - CARPAL TUNNEL SYNDROME [None]
  - ARTHRALGIA [None]
  - ABASIA [None]
  - SOCIAL PROBLEM [None]
